FAERS Safety Report 20481748 (Version 1)
Quarter: 2022Q1

REPORT INFORMATION
  Report Type: Spontaneous
  Country: US (occurrence: US)
  Receive Date: 20220216
  Receipt Date: 20220216
  Transmission Date: 20220423
  Serious: Yes (Hospitalization, Other)
  Sender: FDA-Public Use
  Company Number: US-BoehringerIngelheim-2022-BI-154106

PATIENT
  Age: 67 Year
  Sex: Female

DRUGS (5)
  1. JARDIANCE [Suspect]
     Active Substance: EMPAGLIFLOZIN
     Indication: Product used for unknown indication
  2. HUMALOG [Suspect]
     Active Substance: INSULIN LISPRO
     Indication: Diabetes mellitus
     Dosage: HUMALOG (MIRIOPEN) (KWIKPEN) DEVICE (HUMALOG (MIRIOPEN) (KWIKPEN) DEVICE) PEN, DISPOSABLE
     Route: 058
     Dates: start: 1992
  3. HUMALOG [Suspect]
     Active Substance: INSULIN LISPRO
     Dosage: HUMALOG (MIRIOPEN) (KWIKPEN) DEVICE (HUMALOG (MIRIOPEN) (KWIKPEN) DEVICE) PEN, DISPOSABLE
  4. GLIPIZIDE [Concomitant]
     Active Substance: GLIPIZIDE
     Indication: Product used for unknown indication
  5. LANTUS [Concomitant]
     Active Substance: INSULIN GLARGINE
     Indication: Product used for unknown indication

REACTIONS (9)
  - Blood glucose increased [Unknown]
  - Neoplasm malignant [Unknown]
  - COVID-19 [Recovering/Resolving]
  - Malaise [Unknown]
  - Ketoacidosis [Unknown]
  - Plasma cell myeloma [Unknown]
  - Nasopharyngitis [Unknown]
  - Spinal fracture [Unknown]
  - Blood glucose increased [Unknown]

NARRATIVE: CASE EVENT DATE: 20210203
